FAERS Safety Report 16395329 (Version 2)
Quarter: 2019Q2

REPORT INFORMATION
  Report Type: Spontaneous
  Country: KR (occurrence: KR)
  Receive Date: 20190605
  Receipt Date: 20190618
  Transmission Date: 20190711
  Serious: Yes (Hospitalization)
  Sender: FDA-Public Use
  Company Number: KR-009507513-1905KOR014240

PATIENT
  Sex: Male

DRUGS (10)
  1. CELEBREX [Concomitant]
     Active Substance: CELECOXIB
     Dosage: 200 MILLIGRAM
     Dates: start: 20190501, end: 20190507
  2. MAGO [Concomitant]
     Dosage: 500 MILLIGRAM
     Dates: start: 20190503, end: 20190503
  3. MAGO [Concomitant]
     Dosage: 500 MILLIGRAM
     Dates: start: 20190505, end: 20190523
  4. TRAST [Concomitant]
     Dosage: PATCH
     Dates: start: 20190511, end: 20190521
  5. MAGO [Concomitant]
     Dosage: 500 MILLIGRAM
     Dates: start: 20190504, end: 20190506
  6. TALC [Concomitant]
     Active Substance: TALC
     Dosage: 2 GRAM
  7. CELEBREX [Concomitant]
     Active Substance: CELECOXIB
     Dosage: 200 MILLIGRAM
     Dates: start: 20190508, end: 20190508
  8. KEYTRUDA [Suspect]
     Active Substance: PEMBROLIZUMAB
     Indication: NON-SMALL CELL LUNG CANCER
     Dosage: QUANTITY: 2, DAYS:1
     Dates: start: 20190517
  9. KEYTRUDA [Suspect]
     Active Substance: PEMBROLIZUMAB
     Indication: MALIGNANT PLEURAL EFFUSION
  10. TRAST [Concomitant]
     Dosage: UNK
     Dates: start: 20190501, end: 20190507

REACTIONS (1)
  - Adverse event [Unknown]

NARRATIVE: CASE EVENT DATE: 201905
